FAERS Safety Report 5007823-9 (Version None)
Quarter: 2006Q2

REPORT INFORMATION
  Report Type: 
  Country: None (occurrence: None)
  Receive Date: 20060522
  Receipt Date: 20060405
  Transmission Date: 20061013
  Serious: Yes (Death, Life-Threatening, Hospitalization)
  Sender: FDA-Public Use
  Company Number: JP-AVENTIS-200611093JP

PATIENT
  Age: 73 Year
  Sex: Male
  Weight: 57.15 kg

DRUGS (17)
  1. TAXOTERE [Suspect]
     Indication: PROSTATE CANCER
     Route: 041
     Dates: start: 20060320, end: 20060320
  2. TAXOTERE [Suspect]
     Indication: METASTASES TO BONE
     Route: 041
     Dates: start: 20060320, end: 20060320
  3. ZOMETA [Suspect]
     Indication: METASTASES TO BONE
     Route: 041
     Dates: start: 20060314, end: 20060314
  4. ESTRACYT [Concomitant]
     Indication: PROSTATE CANCER
     Route: 048
     Dates: start: 20060318, end: 20060323
  5. OXYCONTIN [Concomitant]
     Indication: PAIN
     Route: 048
     Dates: start: 20060313, end: 20060321
  6. MORPHINE [Concomitant]
  7. DUROTEP [Concomitant]
     Indication: PAIN
     Route: 062
     Dates: start: 20060322
  8. FENTANEST [Concomitant]
  9. ZANTAC [Concomitant]
     Indication: PREMEDICATION
     Dates: start: 20060320, end: 20060320
  10. DECADRON SRC [Concomitant]
     Indication: PREMEDICATION
     Dates: start: 20060320, end: 20060320
  11. ZOFRAN [Concomitant]
     Indication: PREMEDICATION
     Dates: start: 20060320, end: 20060320
  12. POLARAMINE [Concomitant]
     Indication: PREMEDICATION
     Dates: start: 20060320, end: 20060320
  13. HYPEN [Concomitant]
     Indication: PAIN
     Route: 048
     Dates: start: 20051012, end: 20060324
  14. ODYNE [Concomitant]
     Indication: PROSTATE CANCER
     Route: 048
     Dates: start: 20060206, end: 20060319
  15. RIVOTRIL [Concomitant]
     Indication: PAIN
     Route: 048
     Dates: start: 20060317, end: 20060320
  16. MAGLAX [Concomitant]
     Indication: CONSTIPATION
     Route: 048
     Dates: start: 20060317, end: 20060325
  17. RADIOTHERAPY [Concomitant]
     Indication: METASTASES TO SPINE

REACTIONS (4)
  - ACUTE RESPIRATORY DISTRESS SYNDROME [None]
  - DISSEMINATED INTRAVASCULAR COAGULATION [None]
  - HEPATIC FUNCTION ABNORMAL [None]
  - JAUNDICE [None]
